FAERS Safety Report 6759142-8 (Version None)
Quarter: 2010Q2

REPORT INFORMATION
  Report Type: 
  Country: None (occurrence: None)
  Receive Date: 20100607
  Receipt Date: 20100601
  Transmission Date: 20101027
  Serious: Yes (Other)
  Sender: FDA-Public Use
  Company Number: US-GENENTECH-302448

PATIENT
  Age: 28 Year
  Sex: Female

DRUGS (8)
  1. XOLAIR [Suspect]
     Indication: ASTHMA
     Dosage: 150 MG, Q4W
  2. XOLAIR [Suspect]
     Dosage: 0.125 MG, UNK
  3. XOLAIR [Suspect]
     Dosage: 0.625 MG, UNK
  4. XOLAIR [Suspect]
     Dosage: 2.5 MG, UNK
  5. XOLAIR [Suspect]
     Dosage: 9.25 MG, UNK
  6. XOLAIR [Suspect]
     Dosage: 31.25 MG, UNK
  7. STEROIDS (UNK INGREDIENTS) [Concomitant]
     Indication: ASTHMA
  8. PREDNISONE [Concomitant]
     Indication: DRUG USE FOR UNKNOWN INDICATION

REACTIONS (2)
  - CHEST DISCOMFORT [None]
  - HYPOTENSION [None]
